FAERS Safety Report 5510798-7 (Version None)
Quarter: 2007Q4

REPORT INFORMATION
  Report Type: 
  Country: None (occurrence: None)
  Receive Date: 20071107
  Receipt Date: 20071022
  Transmission Date: 20080405
  Serious: Yes (Hospitalization, Disabling, Other)
  Sender: FDA-Public Use
  Company Number: TRP_00964_2007

PATIENT
  Sex: Female

DRUGS (2)
  1. RIBASPHERE [Suspect]
     Indication: HEPATITIS C
     Dosage: (1200 MG QD ORAL)
     Route: 048
     Dates: start: 20061121
  2. PEGASYS [Suspect]
     Indication: HEPATITIS C
     Dosage: (DF SUBCUTANEOUS)
     Route: 058
     Dates: start: 20061121

REACTIONS (30)
  - ABDOMINAL DISTENSION [None]
  - ANAEMIA [None]
  - ANOREXIA [None]
  - APPETITE DISORDER [None]
  - ARTHRALGIA [None]
  - CARDIOVASCULAR DISORDER [None]
  - CHEST PAIN [None]
  - CONSTIPATION [None]
  - DEHYDRATION [None]
  - DEPRESSION [None]
  - DIARRHOEA [None]
  - DYSPNOEA [None]
  - EAR DISORDER [None]
  - GLUCOSE TOLERANCE IMPAIRED [None]
  - HYPERHIDROSIS [None]
  - HYPOKALAEMIA [None]
  - HYPOTENSION [None]
  - INSOMNIA [None]
  - MELAENA [None]
  - MIGRAINE [None]
  - NAUSEA [None]
  - NECK PAIN [None]
  - NEUROPATHY [None]
  - PERIPHERAL COLDNESS [None]
  - PLATELET COUNT DECREASED [None]
  - RESPIRATORY TRACT INFECTION VIRAL [None]
  - SENSATION OF HEAVINESS [None]
  - VOMITING [None]
  - WEIGHT DECREASED [None]
  - WHITE BLOOD CELL COUNT DECREASED [None]
